FAERS Safety Report 10449729 (Version 2)
Quarter: 2014Q4

REPORT INFORMATION
  Report Type: Spontaneous
  Country: US (occurrence: US)
  Receive Date: 20140912
  Receipt Date: 20141211
  Transmission Date: 20150528
  Serious: No
  Sender: FDA-Public Use
  Company Number: US-INCYTE CORPORATION-2014IN001898

PATIENT
  Age: 78 Year
  Sex: Female

DRUGS (12)
  1. CALCIUM ACETATE. [Concomitant]
     Active Substance: CALCIUM ACETATE
  2. JAKAFI [Suspect]
     Active Substance: RUXOLITINIB
     Indication: MYELODYSPLASTIC SYNDROME
     Dosage: 15 MG, QD
     Route: 048
     Dates: start: 201409, end: 2014
  3. COREG [Concomitant]
     Active Substance: CARVEDILOL
     Dosage: 6.125 MG, BID
  4. LASIX [Concomitant]
     Active Substance: FUROSEMIDE
     Dosage: 40 MG, BID
  5. SYNTHROID [Concomitant]
     Active Substance: LEVOTHYROXINE SODIUM
  6. JAKAFI [Suspect]
     Active Substance: RUXOLITINIB
     Dosage: 1/2 TABLET
     Route: 048
     Dates: start: 2014
  7. JAKAFI [Suspect]
     Active Substance: RUXOLITINIB
     Indication: MYELOFIBROSIS
     Dosage: 15 MG, BID
     Route: 048
     Dates: start: 20140429, end: 20140901
  8. FOLIC ACID. [Concomitant]
     Active Substance: FOLIC ACID
     Dosage: 1 MG, UNK
  9. PREDNISONE. [Concomitant]
     Active Substance: PREDNISONE
     Dosage: 5 MG, QD
  10. MIDAZOLAM [Concomitant]
     Active Substance: MIDAZOLAM\MIDAZOLAM HYDROCHLORIDE
  11. POTASSIUM [Concomitant]
     Active Substance: POTASSIUM
  12. ALLOPURINOL. [Concomitant]
     Active Substance: ALLOPURINOL

REACTIONS (11)
  - Bone pain [Not Recovered/Not Resolved]
  - Feeling abnormal [Not Recovered/Not Resolved]
  - Visual impairment [Not Recovered/Not Resolved]
  - Arthralgia [Unknown]
  - Injury [Unknown]
  - Anaemia [Not Recovered/Not Resolved]
  - Epistaxis [Unknown]
  - Sneezing [Unknown]
  - Poor quality sleep [Unknown]
  - Contusion [Not Recovered/Not Resolved]
  - Wrong technique in drug usage process [Unknown]

NARRATIVE: CASE EVENT DATE: 20140701
